FAERS Safety Report 10417603 (Version 1)
Quarter: 2014Q3

REPORT INFORMATION
  Report Type: Spontaneous
  Country: US (occurrence: None)
  Receive Date: 20140828
  Receipt Date: 20140828
  Transmission Date: 20150326
  Serious: Yes (Other)
  Sender: FDA-Public Use
  Company Number: None

PATIENT
  Age: 37 Year
  Sex: Female

DRUGS (2)
  1. MULTIVITAMIN [Concomitant]
     Active Substance: VITAMINS
  2. TECFIDERA [Suspect]
     Active Substance: DIMETHYL FUMARATE
     Indication: MULTIPLE SCLEROSIS
     Dosage: 1 DOSE BID ORAL
     Route: 048
     Dates: start: 20140801

REACTIONS (3)
  - Abdominal discomfort [None]
  - Flushing [None]
  - Hypoaesthesia [None]

NARRATIVE: CASE EVENT DATE: 20140827
